FAERS Safety Report 11196344 (Version 2)
Quarter: 2015Q3

REPORT INFORMATION
  Report Type: Spontaneous
  Country: US (occurrence: US)
  Receive Date: 20150617
  Receipt Date: 20150713
  Transmission Date: 20151125
  Serious: Yes (Hospitalization)
  Sender: FDA-Public Use
  Company Number: US-PFIZER INC-2015198691

PATIENT
  Age: 56 Year
  Sex: Female
  Weight: 61 kg

DRUGS (6)
  1. LYRICA [Suspect]
     Active Substance: PREGABALIN
     Indication: NEURALGIA
     Dosage: 100 MG, 2X/DAY
     Dates: start: 2004
  2. LYRICA [Suspect]
     Active Substance: PREGABALIN
     Indication: SPINAL CORD INJURY
     Dosage: 100 MG, 1X/DAY
  3. LYRICA [Suspect]
     Active Substance: PREGABALIN
     Dosage: 100 MG, EVERY 8 HOURS
  4. OXYCODONE [Concomitant]
     Active Substance: OXYCODONE
     Dosage: UNK
     Dates: start: 2009
  5. OXYCONTIN [Concomitant]
     Active Substance: OXYCODONE HYDROCHLORIDE
     Indication: PAIN
     Dosage: UNK
  6. LEVOTHYROXINE. [Concomitant]
     Active Substance: LEVOTHYROXINE
     Dosage: UNK
     Dates: start: 2004

REACTIONS (7)
  - Crying [Unknown]
  - Nerve injury [Not Recovered/Not Resolved]
  - Vomiting [Unknown]
  - Scoliosis [Not Recovered/Not Resolved]
  - Nausea [Unknown]
  - Spinal cord injury [Not Recovered/Not Resolved]
  - Condition aggravated [Unknown]

NARRATIVE: CASE EVENT DATE: 2004
